FAERS Safety Report 6914331-4 (Version None)
Quarter: 2010Q3

REPORT INFORMATION
  Report Type: 
  Country: None (occurrence: None)
  Receive Date: 20100804
  Receipt Date: 20100804
  Transmission Date: 20110219
  Serious: Yes (Other)
  Sender: FDA-Public Use
  Company Number: None

PATIENT
  Age: 78 Year
  Sex: Female
  Weight: 52.1637 kg

DRUGS (2)
  1. PRIMAXIN [Suspect]
     Indication: SPINAL DEFORMITY
     Dosage: 1500 MG. 3 X DAY 30 DAYS
     Dates: start: 20091214, end: 20100113
  2. PRIMAXIN [Suspect]
     Indication: TENDON DISORDER
     Dosage: 1500 MG. 3 X DAY 30 DAYS
     Dates: start: 20091214, end: 20100113

REACTIONS (6)
  - BACK PAIN [None]
  - MASS [None]
  - PAIN [None]
  - POSTURE ABNORMAL [None]
  - SPINAL DEFORMITY [None]
  - SPINAL DISORDER [None]
